FAERS Safety Report 7503113-0 (Version None)
Quarter: 2011Q2

REPORT INFORMATION
  Report Type: 
  Country: None (occurrence: None)
  Receive Date: 20110525
  Receipt Date: 20110520
  Transmission Date: 20111010
  Serious: Yes (Other)
  Sender: FDA-Public Use
  Company Number: AU-PFIZER INC-2011109742

PATIENT
  Sex: Male

DRUGS (4)
  1. ETHANOL [Concomitant]
  2. ZOLOFT [Suspect]
     Dosage: 200 MG, 1X/DAY
  3. ZOLOFT [Interacting]
     Dosage: 100 MG, 1X/DAY
  4. LIPITOR [Interacting]

REACTIONS (9)
  - CONVULSION [None]
  - DEPRESSED MOOD [None]
  - SOMNOLENCE [None]
  - HYPOTONIA [None]
  - HYPERACUSIS [None]
  - DYSARTHRIA [None]
  - SPEECH DISORDER [None]
  - DRUG INTERACTION [None]
  - AMNESIA [None]
